FAERS Safety Report 16386558 (Version 1)
Quarter: 2019Q2

REPORT INFORMATION
  Report Type: Spontaneous
  Country: BR (occurrence: BR)
  Receive Date: 20190604
  Receipt Date: 20190604
  Transmission Date: 20190711
  Serious: No
  Sender: FDA-Public Use
  Company Number: BR-LUPIN PHARMACEUTICALS INC.-2019-02051

PATIENT
  Age: 47 Year
  Sex: Female
  Weight: 67 kg

DRUGS (3)
  1. FLUOXETINE HYDROCHLORIDE 20 MG CAPSULE [Suspect]
     Active Substance: FLUOXETINE HYDROCHLORIDE
     Indication: PRODUCT USED FOR UNKNOWN INDICATION
     Dosage: 01 DOSAGE FORM, QD
     Route: 048
     Dates: start: 20190320, end: 20190321
  2. BUPROPIONE [Concomitant]
     Active Substance: BUPROPION HYDROCHLORIDE
     Indication: ANXIETY
     Dosage: 01 DOSAGE FORM, QD
     Route: 048
     Dates: start: 20190120
  3. LEVOTIROXIN [Concomitant]
     Active Substance: LEVOTHYROXINE SODIUM
     Indication: HYPOTHYROIDISM
     Dosage: 01 DOSAGE FORM, QD
     Route: 048

REACTIONS (1)
  - Dermatitis atopic [Recovered/Resolved]

NARRATIVE: CASE EVENT DATE: 20190320
